FAERS Safety Report 13738656 (Version 2)
Quarter: 2018Q2

REPORT INFORMATION
  Report Type: Report from Study
  Country: US (occurrence: US)
  Receive Date: 20170710
  Receipt Date: 20180627
  Transmission Date: 20180711
  Serious: No
  Sender: FDA-Public Use
  Company Number: US-SAOL THERAPEUTICS-2017SAO00092

PATIENT
  Age: 81 Year
  Sex: Male

DRUGS (4)
  1. CLONIDINE. [Suspect]
     Active Substance: CLONIDINE
     Dosage: 0.2675 MG, \DAY - MAX
     Dates: start: 20161026
  2. BACLOFEN. [Suspect]
     Active Substance: BACLOFEN
     Dosage: 267.5 ?G, \DAY-MAX
     Dates: start: 20161026
  3. BACLOFEN. [Suspect]
     Active Substance: BACLOFEN
     Dosage: 210 ?G, \DAY
     Dates: start: 20161026
  4. CLONIDINE. [Suspect]
     Active Substance: CLONIDINE
     Dosage: 0.210 MG, \DAY
     Dates: start: 20161026

REACTIONS (2)
  - Device malfunction [Recovered/Resolved]
  - Pain [Recovered/Resolved]

NARRATIVE: CASE EVENT DATE: 20161114
